FAERS Safety Report 11138076 (Version 5)
Quarter: 2015Q3

REPORT INFORMATION
  Report Type: Report from Study
  Country: CA (occurrence: CA)
  Receive Date: 20150526
  Receipt Date: 20150721
  Transmission Date: 20151125
  Serious: Yes (Life-Threatening)
  Sender: FDA-Public Use
  Company Number: PHHY2015CA049310

PATIENT
  Age: 23 Year
  Sex: Female
  Weight: 127 kg

DRUGS (4)
  1. EXTAVIA [Suspect]
     Active Substance: INTERFERON BETA-1B
     Indication: RELAPSING-REMITTING MULTIPLE SCLEROSIS
     Dosage: 2 MIU (3 DOSES)
     Route: 058
     Dates: start: 20150420
  2. EXTAVIA [Suspect]
     Active Substance: INTERFERON BETA-1B
     Dosage: 4 MIU, (3 DOSES, TITRATION SCHEDULE)
     Route: 058
  3. EXTAVIA [Suspect]
     Active Substance: INTERFERON BETA-1B
     Dosage: 6 MIU, (3 DOSES)
     Route: 058
  4. EXTAVIA [Suspect]
     Active Substance: INTERFERON BETA-1B
     Dosage: 8 MIU, QOD
     Route: 058

REACTIONS (15)
  - Injection site erythema [Unknown]
  - Injection site reaction [Unknown]
  - Headache [Unknown]
  - Pain [Unknown]
  - Fatigue [Unknown]
  - Injection site papule [Unknown]
  - Vomiting [Unknown]
  - Malaise [Unknown]
  - Decreased appetite [Unknown]
  - Skin exfoliation [Unknown]
  - Influenza like illness [Unknown]
  - Product quality issue [Unknown]
  - Feeling abnormal [Unknown]
  - Bone pain [Unknown]
  - Nausea [Unknown]

NARRATIVE: CASE EVENT DATE: 20150420
